FAERS Safety Report 4808514-7 (Version None)
Quarter: 2005Q4

REPORT INFORMATION
  Report Type: 
  Country: None (occurrence: None)
  Receive Date: 20051021
  Receipt Date: 20030819
  Transmission Date: 20060501
  Serious: No
  Sender: FDA-Public Use
  Company Number: DE_030811880

PATIENT
  Age: 30 Year
  Sex: Female

DRUGS (6)
  1. ZYPREXA [Suspect]
     Indication: DEPRESSION
     Dosage: 5 MG/DAY
     Dates: start: 20030801, end: 20030801
  2. ZYPREXA [Suspect]
     Indication: PERSONALITY DISORDER
     Dosage: 5 MG/DAY
     Dates: start: 20030801, end: 20030801
  3. MULTIBIONTA FORTE [Concomitant]
  4. VIGANTOLETTEN (COLECALCIFEROL) [Concomitant]
  5. CALCIUM EFERVESCENT TABLET [Concomitant]
  6. KALINOR-BRAUSETABLETTEN [Concomitant]

REACTIONS (4)
  - ANAEMIA [None]
  - CONDITION AGGRAVATED [None]
  - LEUKOPENIA [None]
  - PLATELET COUNT INCREASED [None]
